FAERS Safety Report 18928864 (Version 1)
Quarter: 2021Q1

REPORT INFORMATION
  Report Type: Spontaneous
  Country: CN (occurrence: CN)
  Receive Date: 20210223
  Receipt Date: 20210223
  Transmission Date: 20210420
  Serious: Yes (Hospitalization, Other)
  Sender: FDA-Public Use
  Company Number: CN-BAXTER-2021BAX003520

PATIENT
  Age: 75 Year
  Sex: Male
  Weight: 70 kg

DRUGS (6)
  1. RITUXIMAB. [Suspect]
     Active Substance: RITUXIMAB
     Indication: DIFFUSE LARGE B-CELL LYMPHOMA
     Dosage: R? CHOP IMMUNOCHEMOTHERAPY
     Route: 041
     Dates: start: 20210109, end: 20210109
  2. DEXRAZOXANE. [Suspect]
     Active Substance: DEXRAZOXANE
     Indication: DIFFUSE LARGE B-CELL LYMPHOMA
     Route: 041
     Dates: start: 20210110, end: 20210110
  3. PREDNISONE. [Suspect]
     Active Substance: PREDNISONE
     Indication: DIFFUSE LARGE B-CELL LYMPHOMA
     Dosage: R? CHOP IMMUNOCHEMOTHERAPY
     Route: 065
  4. DOXORUBICIN HYDROCHLORIDE LIPOSOME [Suspect]
     Active Substance: DOXORUBICIN HYDROCHLORIDE
     Indication: DIFFUSE LARGE B-CELL LYMPHOMA
     Dosage: R? CHOP IMMUNOCHEMOTHERAPY
     Route: 041
     Dates: start: 20210110, end: 20210110
  5. VINCRISTINE [Suspect]
     Active Substance: VINCRISTINE
     Indication: DIFFUSE LARGE B-CELL LYMPHOMA
     Dosage: R? CHOP IMMUNOCHEMOTHERAPY
     Route: 065
  6. ENDOXAN [Suspect]
     Active Substance: CYCLOPHOSPHAMIDE
     Indication: DIFFUSE LARGE B-CELL LYMPHOMA
     Dosage: R? CHOP IMMUNOCHEMOTHERAPY
     Route: 041
     Dates: start: 20210110, end: 20210110

REACTIONS (2)
  - Haematemesis [Recovering/Resolving]
  - Melaena [Recovering/Resolving]

NARRATIVE: CASE EVENT DATE: 20210122
